FAERS Safety Report 5748492-X (Version None)
Quarter: 2008Q2

REPORT INFORMATION
  Report Type: 
  Country: None (occurrence: None)
  Receive Date: 20080520
  Receipt Date: 20080508
  Transmission Date: 20081010
  Serious: Yes (Hospitalization)
  Sender: FDA-Public Use
  Company Number: 2008-00299

PATIENT
  Age: 68 Year
  Sex: Female
  Weight: 95.2 kg

DRUGS (16)
  1. VELCADE [Suspect]
     Indication: MULTIPLE MYELOMA
     Dosage: 1.30 MG/M2, INTRAVENOUS
     Route: 042
     Dates: start: 20071228, end: 20080107
  2. DEXAMETHASONE TAB [Concomitant]
  3. ADVAIR DISKUS 100/50 [Concomitant]
  4. METORPOLOL (METOPROLOL) [Concomitant]
  5. PROZAC [Concomitant]
  6. PROTONIX [Concomitant]
  7. DILTIAZEM [Concomitant]
  8. CALCITROL (ERGOCALCIFEROL, RETINOL, CALCIUM CARBONATE) [Concomitant]
  9. MAGNESIUM OXIDE (MAGNESIUM OXIDE) [Concomitant]
  10. ALLOPURINOL [Concomitant]
  11. LASIX [Concomitant]
  12. BISOPROLOL FUMARATE [Concomitant]
  13. ALBUTEROL [Concomitant]
  14. FLUOXETINE [Concomitant]
  15. COLACE (DOCUSATE SODIUM) [Concomitant]
  16. SENOKOT [Concomitant]

REACTIONS (11)
  - APNOEA [None]
  - BLOOD PRESSURE INCREASED [None]
  - CHRONIC OBSTRUCTIVE PULMONARY DISEASE [None]
  - CONDITION AGGRAVATED [None]
  - CONSTIPATION [None]
  - HAEMOGLOBIN DECREASED [None]
  - NEUROPATHY PERIPHERAL [None]
  - OXYGEN SATURATION DECREASED [None]
  - RESPIRATORY RATE INCREASED [None]
  - SYNCOPE [None]
  - UNRESPONSIVE TO STIMULI [None]
